FAERS Safety Report 20058483 (Version 1)
Quarter: 2021Q4

REPORT INFORMATION
  Report Type: Spontaneous
  Country: US (occurrence: None)
  Receive Date: 20211111
  Receipt Date: 20211111
  Transmission Date: 20220303
  Serious: No
  Sender: FDA-Public Use
  Company Number: None

PATIENT

DRUGS (3)
  1. FENTANYL [Suspect]
     Active Substance: FENTANYL
  2. PROPOFOL [Suspect]
     Active Substance: PROPOFOL
  3. VECURONIUM BROMIDE [Suspect]
     Active Substance: VECURONIUM BROMIDE

REACTIONS (3)
  - Drug monitoring procedure not performed [None]
  - Wrong product administered [None]
  - Wrong technique in product usage process [None]
